FAERS Safety Report 6153292-5 (Version None)
Quarter: 2009Q2

REPORT INFORMATION
  Report Type: 
  Country: None (occurrence: None)
  Receive Date: 20090409
  Receipt Date: 20090327
  Transmission Date: 20091009
  Serious: Yes (Death)
  Sender: FDA-Public Use
  Company Number: 2009000784

PATIENT
  Age: 65 Year
  Sex: Male

DRUGS (4)
  1. TARCEVA [Suspect]
     Indication: LUNG NEOPLASM MALIGNANT
     Dosage: (150 MG,QD),ORAL
     Route: 048
     Dates: start: 20081013
  2. FLUINDIONE (FLUINDIONE) [Suspect]
  3. PENTOXIFYLLINE [Suspect]
  4. NON-STEROIDAL ANTI-INFLMMATORIES [Concomitant]

REACTIONS (6)
  - ACNE [None]
  - CEREBRAL HAEMORRHAGE [None]
  - DRUG INTERACTION [None]
  - INTERNATIONAL NORMALISED RATIO INCREASED [None]
  - OVERDOSE [None]
  - PROTHROMBIN LEVEL DECREASED [None]
